FAERS Safety Report 21257175 (Version 1)
Quarter: 2022Q3

REPORT INFORMATION
  Report Type: Spontaneous
  Country: DE (occurrence: DE)
  Receive Date: 20220826
  Receipt Date: 20220826
  Transmission Date: 20221027
  Serious: Yes (Other)
  Sender: FDA-Public Use
  Company Number: DE-TAKEDA-2022TUS057738

PATIENT
  Age: 63 Year
  Sex: Female

DRUGS (8)
  1. BRIGATINIB [Suspect]
     Active Substance: BRIGATINIB
     Indication: Lung neoplasm malignant
     Dosage: UNK
     Route: 065
     Dates: start: 201806
  2. CISPLATIN [Concomitant]
     Active Substance: CISPLATIN
     Dosage: UNK
     Route: 065
  3. CARBOPLATIN;PEMETREXED [Concomitant]
     Dosage: UNK
     Route: 065
  4. CRIZOTINIB [Concomitant]
     Active Substance: CRIZOTINIB
     Dosage: 250 MILLIGRAM
     Route: 065
  5. DENOSUMAB [Concomitant]
     Active Substance: DENOSUMAB
     Dosage: UNK
     Route: 065
  6. CERITINIB [Concomitant]
     Active Substance: CERITINIB
     Dosage: UNK
     Route: 065
     Dates: start: 201603
  7. ALECTINIB [Concomitant]
     Active Substance: ALECTINIB
     Dosage: UNK
     Route: 065
     Dates: start: 201705
  8. ENTRECTINIB [Concomitant]
     Active Substance: ENTRECTINIB
     Dosage: UNK
     Route: 065

REACTIONS (3)
  - Metastases to central nervous system [Unknown]
  - Muscle spasms [Unknown]
  - Blood creatine phosphokinase increased [Unknown]
